FAERS Safety Report 9457837 (Version 2)
Quarter: 2013Q3

REPORT INFORMATION
  Report Type: Spontaneous
  Country: DE (occurrence: DE)
  Receive Date: 20130814
  Receipt Date: 20130905
  Transmission Date: 20140515
  Serious: Yes (Hospitalization)
  Sender: FDA-Public Use
  Company Number: DE-CELGENEUS-062-21880-13074773

PATIENT
  Age: 50 Year
  Sex: Female
  Weight: 78 kg

DRUGS (4)
  1. REVLIMID [Suspect]
     Indication: PRODUCT USED FOR UNKNOWN INDICATION
     Dosage: 25 MILLIGRAM
     Route: 048
     Dates: start: 20130114, end: 20130709
  2. DEXAMETHASONE [Suspect]
     Indication: PRODUCT USED FOR UNKNOWN INDICATION
     Dosage: DAY 1, 8, 15, 22
     Route: 048
     Dates: start: 20130114, end: 20130708
  3. BENDAMUSTINE [Suspect]
     Indication: PRODUCT USED FOR UNKNOWN INDICATION
     Dosage: 130 MILLIGRAM
     Route: 041
     Dates: start: 20130114, end: 20130423
  4. PEGFILGRASTIM [Suspect]
     Indication: PRODUCT USED FOR UNKNOWN INDICATION
     Dosage: DAY 3
     Route: 058
     Dates: start: 20130320, end: 20130424

REACTIONS (1)
  - Diarrhoea haemorrhagic [Recovered/Resolved]
